FAERS Safety Report 7187271-6 (Version None)
Quarter: 2010Q4

REPORT INFORMATION
  Report Type: 
  Country: None (occurrence: None)
  Receive Date: 20101222
  Receipt Date: 20101217
  Transmission Date: 20110411
  Serious: Yes (Other)
  Sender: FDA-Public Use
  Company Number: DE-ABBOTT-10P-062-0692480-00

PATIENT
  Sex: Male

DRUGS (4)
  1. NORVIR [Suspect]
     Indication: HIV INFECTION
     Route: 048
     Dates: start: 20081215
  2. REYATAZ [Interacting]
     Indication: HIV INFECTION
     Route: 048
     Dates: start: 20081215, end: 20090910
  3. TRIAMCINOLONE [Interacting]
     Indication: INTERVERTEBRAL DISC DEGENERATION
     Route: 030
     Dates: start: 20090806
  4. TRIZIVIR [Interacting]
     Indication: HIV INFECTION
     Route: 048
     Dates: start: 20070516, end: 20090910

REACTIONS (2)
  - CUSHING'S SYNDROME [None]
  - DRUG INTERACTION [None]
